FAERS Safety Report 5887440-9 (Version None)
Quarter: 2008Q3

REPORT INFORMATION
  Report Type: 
  Country: None (occurrence: None)
  Receive Date: 20080917
  Receipt Date: 20080917
  Transmission Date: 20090109
  Serious: Yes (Life-Threatening)
  Sender: FDA-Public Use
  Company Number: None

PATIENT
  Age: 71 Year
  Sex: Female
  Weight: 64.4108 kg

DRUGS (1)
  1. AMBIEN CR [Suspect]
     Dosage: 1 PILL TWO DIFFERENT DAYS

REACTIONS (3)
  - DISORIENTATION [None]
  - HALLUCINATION [None]
  - MUSCLE SPASMS [None]
